FAERS Safety Report 5500303-3 (Version None)
Quarter: 2007Q4

REPORT INFORMATION
  Report Type: 
  Country: None (occurrence: None)
  Receive Date: 20071025
  Receipt Date: 20071017
  Transmission Date: 20080405
  Serious: Yes (Disabling, Other)
  Sender: FDA-Public Use
  Company Number: 6038510

PATIENT
  Age: 63 Year
  Sex: Male

DRUGS (13)
  1. BISOPROLOL FUMARATE [Suspect]
     Indication: PALPITATIONS
     Dosage: 5 MG (5 MG,1 IN 1 D), ORAL
     Route: 048
     Dates: start: 20070728
  2. ACETYLSALICYLIC ACID SRT [Concomitant]
  3. AMLODIPINE [Concomitant]
  4. BENDROFLUMETHIAZIDE (BENDROFLUMETHIAZIDE) [Concomitant]
  5. CIMETIDINE [Concomitant]
  6. DOSULEPIN [Concomitant]
  7. INSULIN HUMAN (INSULIN HUMAN) [Concomitant]
  8. ISOPHANE INSULIN MEDIUM [Concomitant]
  9. MEBEVERINE HYDROCHLORIDE [Concomitant]
  10. METFORMIN HCL [Concomitant]
  11. PANCREATIN TRIPLE STRENGTH CAP [Concomitant]
  12. PRAVASTATIN [Concomitant]
  13. RAMIPRIL [Concomitant]

REACTIONS (1)
  - DEAFNESS UNILATERAL [None]
